FAERS Safety Report 10863267 (Version 2)
Quarter: 2015Q1

REPORT INFORMATION
  Report Type: Report from Study
  Country: RO (occurrence: RO)
  Receive Date: 20150224
  Receipt Date: 20150316
  Transmission Date: 20150721
  Serious: Yes (Hospitalization)
  Sender: FDA-Public Use
  Company Number: RO-ABBVIE-15P-135-1349672-00

PATIENT
  Age: 69 Year
  Sex: Male

DRUGS (5)
  1. ENAP [Concomitant]
     Active Substance: ENALAPRIL
     Route: 048
  2. RIVOTRIL [Concomitant]
     Active Substance: CLONAZEPAM
     Indication: DEMENTIA
     Dosage: IN THE EVENING
     Route: 048
  3. RIVASTIGMINE [Concomitant]
     Active Substance: RIVASTIGMINE
     Indication: DEMENTIA
     Route: 048
  4. ENAP [Concomitant]
     Active Substance: ENALAPRIL
     Indication: HYPERTENSION
     Route: 048
  5. LEVODOPA/CARBIDOPA [Suspect]
     Active Substance: CARBIDOPA\LEVODOPA
     Indication: PARKINSON^S DISEASE
     Dosage: CR: 6.5 ML/H;ED: 8 ML;THE PUMP WORKS 24 H
     Route: 050
     Dates: start: 20130730, end: 20150122

REACTIONS (12)
  - Confusional state [Unknown]
  - Device dislocation [Unknown]
  - Dementia [Unknown]
  - Agnosia [Unknown]
  - Hallucination, auditory [Unknown]
  - Hallucination, visual [Unknown]
  - Memory impairment [Unknown]
  - Hallucination [Recovering/Resolving]
  - Sexual dysfunction [Unknown]
  - Psychomotor hyperactivity [Unknown]
  - Aphasia [Unknown]
  - Disorientation [Unknown]

NARRATIVE: CASE EVENT DATE: 20150122
